FAERS Safety Report 5915131-4 (Version None)
Quarter: 2008Q4

REPORT INFORMATION
  Report Type: 
  Country: None (occurrence: None)
  Receive Date: 20081008
  Receipt Date: 20080930
  Transmission Date: 20090506
  Serious: Yes (Congenital Anomaly)
  Sender: FDA-Public Use
  Company Number: 100#08#2008-04770

PATIENT
  Sex: 0

DRUGS (3)
  1. CARBAMAZEPINE [Suspect]
     Indication: EPILEPSY
     Dosage: APP. 650 MG, TRANSPLACENTAL
     Route: 064
  2. PHENOBARBITAL TAB [Suspect]
     Indication: EPILEPSY
     Dosage: APP. 130 MG, TRANSPLACENTAL
     Route: 064
  3. FOLIC ACID [Concomitant]

REACTIONS (6)
  - CAESAREAN SECTION [None]
  - CONGENITAL CYSTIC KIDNEY DISEASE [None]
  - DYSMORPHISM [None]
  - MATERNAL DRUGS AFFECTING FOETUS [None]
  - RENAL HYPERTROPHY [None]
  - VESICOURETERIC REFLUX [None]
